FAERS Safety Report 21006765 (Version 2)
Quarter: 2022Q3

REPORT INFORMATION
  Report Type: Spontaneous
  Country: SK (occurrence: SK)
  Receive Date: 20220625
  Receipt Date: 20220707
  Transmission Date: 20221027
  Serious: Yes (Other)
  Sender: FDA-Public Use
  Company Number: SK-BAXTER-2022BAX011835

PATIENT
  Sex: Male

DRUGS (8)
  1. IBRUTINIB [Suspect]
     Active Substance: IBRUTINIB
     Indication: Mantle cell lymphoma
     Dosage: 3RD LINE OF CHEMOTHERAPY, 2 TAB
     Route: 048
     Dates: start: 202107
  2. PREDNISONE [Suspect]
     Active Substance: PREDNISONE
     Indication: Mantle cell lymphoma
     Dosage: 1ST LINE OF CHEMO, 6XCHOP PLUS 8XRITUXIMAB IN REDUCED DOSES DUE TO COMORBIDITY AND BICYTOP
     Route: 065
     Dates: start: 201802, end: 201808
  3. DOXORUBICIN [Suspect]
     Active Substance: DOXORUBICIN
     Indication: Mantle cell lymphoma
     Dosage: 1ST LINE OF CHEMO, 6XCHOP PLUS 8XRITUXIMAB IN REDUCED DOSES DUE TO COMORBIDITY AND BICYTOP
     Route: 065
     Dates: start: 201802, end: 201808
  4. CYCLOPHOSPHAMIDE [Suspect]
     Active Substance: CYCLOPHOSPHAMIDE
     Indication: Mantle cell lymphoma
     Dosage: 1ST LINE OF CHEMO, 6XCHOP PLUS 8XRITUXIMAB IN REDUCED DOSES DUE TO COMORBIDITY AND BICYTOP
     Route: 065
     Dates: start: 201802, end: 201808
  5. RITUXIMAB [Suspect]
     Active Substance: RITUXIMAB
     Indication: Mantle cell lymphoma
     Dosage: 1ST LINE OF CHEMO, 6XCHOP PLUS 8XRITUXIMAB IN REDUCED DOSES DUE TO COMORBIDITY AND BICYTOP
     Route: 065
     Dates: start: 201802, end: 201808
  6. RITUXIMAB [Suspect]
     Active Substance: RITUXIMAB
     Dosage: 2ND LINE OF CHEMOTHERAPY, 8X BR (BENDAMUSTIN PLUS RITUXIMAB)
     Route: 065
     Dates: start: 202004, end: 202011
  7. VINCRISTINE [Suspect]
     Active Substance: VINCRISTINE
     Indication: Mantle cell lymphoma
     Dosage: 1ST LINE OF CHEMO, 6XCHOP PLUS 8XRITUXIMAB IN REDUCED DOSES DUE TO COMORBIDITY AND BICYTOP
     Route: 065
     Dates: start: 201802, end: 201808
  8. BENDAMUSTINE [Suspect]
     Active Substance: BENDAMUSTINE
     Indication: Mantle cell lymphoma
     Dosage: 8X BR (BENDAMUSTIN PLUS RITUXIMAB)
     Route: 065
     Dates: start: 202004, end: 202011

REACTIONS (3)
  - Disease recurrence [Unknown]
  - Disease recurrence [Unknown]
  - Therapeutic product effect incomplete [Unknown]

NARRATIVE: CASE EVENT DATE: 20210101
